FAERS Safety Report 19508358 (Version 2)
Quarter: 2021Q3

REPORT INFORMATION
  Report Type: Spontaneous
  Country: ES (occurrence: ES)
  Receive Date: 20210708
  Receipt Date: 20210902
  Transmission Date: 20211014
  Serious: Yes (Hospitalization, Other)
  Sender: FDA-Public Use
  Company Number: NVSC2021ES147867

PATIENT
  Age: 63 Year
  Sex: Female

DRUGS (4)
  1. LETROZOLE. [Suspect]
     Active Substance: LETROZOLE
     Indication: BREAST CANCER METASTATIC
     Dosage: UNK UNK, QD
     Route: 065
  2. ABEMACICLIB [Suspect]
     Active Substance: ABEMACICLIB
     Dosage: 300 MG, QD (150 MG, BID)
     Route: 048
  3. ABEMACICLIB [Suspect]
     Active Substance: ABEMACICLIB
     Indication: BREAST CANCER METASTATIC
     Dosage: 150 MG, QD (150 MG, DAILY)
     Route: 048
     Dates: start: 20210525
  4. ABEMACICLIB [Suspect]
     Active Substance: ABEMACICLIB
     Dosage: 100 MG
     Route: 048
     Dates: start: 20210609, end: 20210612

REACTIONS (8)
  - Diarrhoea [Unknown]
  - Depression [Recovering/Resolving]
  - Feeling abnormal [Unknown]
  - Thrombosis [Recovering/Resolving]
  - Campylobacter sepsis [Recovering/Resolving]
  - Suicidal ideation [Recovering/Resolving]
  - Nausea [Unknown]
  - Pulmonary embolism [Unknown]

NARRATIVE: CASE EVENT DATE: 20210525
